FAERS Safety Report 12475997 (Version 2)
Quarter: 2016Q2

REPORT INFORMATION
  Report Type: Spontaneous
  Country: RU (occurrence: RU)
  Receive Date: 20160617
  Receipt Date: 20160627
  Transmission Date: 20160815
  Serious: Yes (Life-Threatening, Hospitalization)
  Sender: FDA-Public Use
  Company Number: RU-PFIZER INC-2016302058

PATIENT
  Age: 69 Year
  Sex: Female

DRUGS (1)
  1. CORDARONE [Suspect]
     Active Substance: AMIODARONE HYDROCHLORIDE
     Indication: EXTRASYSTOLES
     Dosage: 200 MG, 3X/DAY
     Route: 048
     Dates: start: 20160601, end: 20160603

REACTIONS (3)
  - Hypokalaemia [Recovered/Resolved]
  - Cardiac arrest [Recovered/Resolved]
  - Hyperglycaemia [Recovered/Resolved]

NARRATIVE: CASE EVENT DATE: 20160603
